FAERS Safety Report 21261250 (Version 1)
Quarter: 2022Q3

REPORT INFORMATION
  Report Type: Spontaneous
  Country: US (occurrence: US)
  Receive Date: 20220826
  Receipt Date: 20220826
  Transmission Date: 20221026
  Serious: Yes (Hospitalization, Other)
  Sender: FDA-Public Use
  Company Number: US-ABBVIE-22K-163-4517423-00

PATIENT
  Age: 74 Year
  Sex: Male

DRUGS (3)
  1. IMBRUVICA [Suspect]
     Active Substance: IBRUTINIB
     Indication: Product used for unknown indication
     Route: 048
     Dates: end: 2022
  2. IMBRUVICA [Suspect]
     Active Substance: IBRUTINIB
     Dosage: DOSE REDUCED
     Route: 048
     Dates: start: 2022, end: 2022
  3. IMBRUVICA [Suspect]
     Active Substance: IBRUTINIB
     Dosage: UNKNOWN
     Route: 048
     Dates: start: 2022

REACTIONS (2)
  - Urinary bladder haemorrhage [Recovered/Resolved]
  - Urinary retention [Recovered/Resolved]

NARRATIVE: CASE EVENT DATE: 20220101
